FAERS Safety Report 4682327-1 (Version None)
Quarter: 2005Q2

REPORT INFORMATION
  Report Type: 
  Country: None (occurrence: None)
  Receive Date: 20050606
  Receipt Date: 20050525
  Transmission Date: 20051028
  Serious: Yes (Other)
  Sender: FDA-Public Use
  Company Number: US-AMGEN-US135656

PATIENT

DRUGS (2)
  1. ENBREL [Suspect]
     Indication: RHEUMATOID ARTHRITIS
     Route: 058
     Dates: start: 20000101
  2. PREDNISONE [Concomitant]

REACTIONS (3)
  - PARKINSON'S DISEASE [None]
  - PNEUMONIA BACTERIAL [None]
  - SINUSITIS [None]
